FAERS Safety Report 24246543 (Version 1)
Quarter: 2024Q3

REPORT INFORMATION
  Report Type: Spontaneous
  Country: DE (occurrence: DE)
  Receive Date: 20240825
  Receipt Date: 20240825
  Transmission Date: 20241016
  Serious: Yes (Death)
  Sender: AMGEN
  Company Number: DE-AMGEN-DEUSP2024165597

PATIENT

DRUGS (1)
  1. ADALIMUMAB [Suspect]
     Active Substance: ADALIMUMAB
     Indication: Rheumatoid arthritis
     Dosage: UNK
     Route: 065

REACTIONS (4)
  - Death [Fatal]
  - Treatment failure [Unknown]
  - Adverse event [Unknown]
  - Treatment noncompliance [Unknown]
